FAERS Safety Report 11394198 (Version 1)
Quarter: 2015Q3

REPORT INFORMATION
  Report Type: Spontaneous
  Country: US (occurrence: None)
  Receive Date: 20150817
  Receipt Date: 20150817
  Transmission Date: 20151125
  Serious: No
  Sender: FDA-Public Use
  Company Number: None

PATIENT
  Age: 65 Year
  Sex: Male
  Weight: 74.84 kg

DRUGS (6)
  1. FLOMAX (TAMSULOSIN) [Concomitant]
  2. FLECAINIDE [Suspect]
     Active Substance: FLECAINIDE
     Indication: ARRHYTHMIA
     Dosage: TAKEN BY MOUTH
     Dates: start: 20150508, end: 20150613
  3. FLECAINIDE [Suspect]
     Active Substance: FLECAINIDE
     Indication: PROPHYLAXIS
     Dosage: TAKEN BY MOUTH
     Dates: start: 20150508, end: 20150613
  4. ELIQUIS [Concomitant]
     Active Substance: APIXABAN
  5. LOTENSIN (BENAZEPRIL) [Concomitant]
  6. RITALIN [Concomitant]
     Active Substance: METHYLPHENIDATE HYDROCHLORIDE

REACTIONS (5)
  - Fatigue [None]
  - Dizziness [None]
  - Autoimmune disorder [None]
  - Paraesthesia [None]
  - Dry mouth [None]

NARRATIVE: CASE EVENT DATE: 20150508
